FAERS Safety Report 23066452 (Version 1)
Quarter: 2023Q4

REPORT INFORMATION
  Report Type: Spontaneous
  Country: CN (occurrence: CN)
  Receive Date: 20231015
  Receipt Date: 20231015
  Transmission Date: 20240109
  Serious: Yes (Hospitalization, Disabling, Other)
  Sender: FDA-Public Use
  Company Number: CN-SA-SAC20231013000673

PATIENT
  Age: 59 Year
  Sex: Female
  Weight: 42 kg

DRUGS (4)
  1. OXALIPLATIN [Suspect]
     Active Substance: OXALIPLATIN
     Indication: Bile duct cancer
     Dosage: 120 MG, QD
     Route: 041
     Dates: start: 20231001, end: 20231001
  2. GEMCITABINE HYDROCHLORIDE [Suspect]
     Active Substance: GEMCITABINE HYDROCHLORIDE
     Indication: Bile duct cancer
     Dosage: 1.2 G, QD
     Route: 041
     Dates: start: 20231001, end: 20231001
  3. CAMRELIZUMAB [Suspect]
     Active Substance: CAMRELIZUMAB
     Indication: Bile duct cancer
     Dosage: 200 MG, QD
     Route: 041
     Dates: start: 20231001, end: 20231001
  4. DISITAMAB VEDOTIN [Suspect]
     Active Substance: DISITAMAB VEDOTIN
     Indication: Bile duct cancer
     Dosage: 120 MG, QD
     Route: 041
     Dates: start: 20231001, end: 20231001

REACTIONS (7)
  - Pancytopenia [Recovering/Resolving]
  - Feeling hot [Recovering/Resolving]
  - Asthenia [Recovering/Resolving]
  - Diarrhoea [Recovering/Resolving]
  - Vomiting [Recovering/Resolving]
  - Pyrexia [Recovering/Resolving]
  - Decreased appetite [Recovering/Resolving]

NARRATIVE: CASE EVENT DATE: 20231003
